FAERS Safety Report 8044748-9 (Version None)
Quarter: 2012Q1

REPORT INFORMATION
  Report Type: 
  Country: None (occurrence: None)
  Receive Date: 20120113
  Receipt Date: 20120106
  Transmission Date: 20120608
  Serious: Yes (Death, Other)
  Sender: FDA-Public Use
  Company Number: DE-ELI_LILLY_AND_COMPANY-DE201112005828

PATIENT
  Age: 71 Year
  Sex: Female

DRUGS (8)
  1. ARIPIPRAZOLE [Concomitant]
  2. DIAZEPAM [Concomitant]
     Indication: BIPOLAR DISORDER
  3. LITHIUM CARBONATE [Concomitant]
     Indication: BIPOLAR DISORDER
     Dosage: UNK
     Dates: end: 20110610
  4. LITHIUM CARBONATE [Concomitant]
     Indication: BIPOLAR DISORDER
  5. AMISULPRID [Concomitant]
  6. ZYPREXA [Suspect]
     Indication: BIPOLAR DISORDER
     Dosage: 10 MG, UNK
     Route: 048
     Dates: start: 20110608, end: 20110619
  7. LORAZEPAM [Concomitant]
     Indication: BIPOLAR DISORDER
     Dosage: 2 MG, QD
  8. HALDOL [Concomitant]
     Indication: BIPOLAR DISORDER
     Dosage: UNK
     Dates: end: 20110610

REACTIONS (13)
  - C-REACTIVE PROTEIN INCREASED [None]
  - DEHYDRATION [None]
  - GAIT DISTURBANCE [None]
  - BLOOD ALKALINE PHOSPHATASE INCREASED [None]
  - BLOOD LACTATE DEHYDROGENASE INCREASED [None]
  - STATUS EPILEPTICUS [None]
  - BLOOD CREATINE PHOSPHOKINASE INCREASED [None]
  - INTERNATIONAL NORMALISED RATIO INCREASED [None]
  - COMA [None]
  - HYPOPHAGIA [None]
  - BLOOD FIBRINOGEN INCREASED [None]
  - PULMONARY EMBOLISM [None]
  - APHAGIA [None]
